FAERS Safety Report 4387954-7 (Version None)
Quarter: 2004Q2

REPORT INFORMATION
  Report Type: 
  Country: None (occurrence: None)
  Receive Date: 20040607
  Receipt Date: 20040123
  Transmission Date: 20050107
  Serious: Yes (Other)
  Sender: FDA-Public Use
  Company Number: 357008

PATIENT
  Age: 14 Year
  Sex: Female
  Weight: 52.2 kg

DRUGS (1)
  1. ACCUTANE [Suspect]
     Indication: ACNE CYSTIC
     Dosage: 60 MG DAILY 2 PER DAY  ORAL
     Route: 048
     Dates: start: 20031122, end: 20040130

REACTIONS (1)
  - THROMBOCYTOPENIA [None]
